FAERS Safety Report 18136785 (Version 1)
Quarter: 2020Q3

REPORT INFORMATION
  Report Type: Report from Study
  Country: None (occurrence: US)
  Receive Date: 20200812
  Receipt Date: 20200812
  Transmission Date: 20201103
  Serious: Yes (Other)
  Sender: FDA-Public Use
  Company Number: US-ABBVIE-20K-163-3364948-00

PATIENT
  Sex: Female
  Weight: 63.56 kg

DRUGS (1)
  1. HUMIRA [Suspect]
     Active Substance: ADALIMUMAB
     Indication: RHEUMATOID ARTHRITIS
     Dosage: CITRATE FREE
     Route: 058

REACTIONS (8)
  - Pulmonary oedema [Unknown]
  - Pulmonary fibrosis [Unknown]
  - Burns second degree [Unknown]
  - Asthma [Unknown]
  - Pulmonary function test decreased [Recovering/Resolving]
  - Injection site pruritus [Not Recovered/Not Resolved]
  - Pneumonia bacterial [Recovering/Resolving]
  - Rash vesicular [Unknown]

NARRATIVE: CASE EVENT DATE: 2020
